FAERS Safety Report 20068180 (Version 1)
Quarter: 2021Q4

REPORT INFORMATION
  Report Type: Spontaneous
  Country: US (occurrence: None)
  Receive Date: 20211112
  Receipt Date: 20211112
  Transmission Date: 20220303
  Serious: Yes (Hospitalization)
  Sender: FDA-Public Use
  Company Number: None

PATIENT
  Age: 83 Year
  Sex: Male
  Weight: 94 kg

DRUGS (1)
  1. APIXABAN [Suspect]
     Active Substance: APIXABAN
     Indication: Atrial fibrillation
     Dosage: FREQUENCY : TWICE A DAY;?
     Route: 048

REACTIONS (6)
  - Lower gastrointestinal haemorrhage [None]
  - Diverticulum intestinal [None]
  - Haemorrhoids [None]
  - Large intestine polyp [None]
  - Diverticulum intestinal haemorrhagic [None]
  - Anaemia [None]

NARRATIVE: CASE EVENT DATE: 20210918
